FAERS Safety Report 9222103 (Version 3)
Quarter: 2013Q2

REPORT INFORMATION
  Report Type: Spontaneous
  Country: GB (occurrence: GB)
  Receive Date: 20130410
  Receipt Date: 20130508
  Transmission Date: 20140414
  Serious: Yes (Hospitalization, Other)
  Sender: FDA-Public Use
  Company Number: GB-RANBAXY-2013RR-67113

PATIENT
  Age: 74 Year
  Sex: Male

DRUGS (7)
  1. FLUCLOXACILLIN [Suspect]
     Indication: BACTERIAL INFECTION
     Dosage: 500 MG, QID
     Route: 048
  2. FLUCLOXACILLIN [Suspect]
     Indication: BACTERIAL INFECTION
  3. AMOXICILLIN/CLAVULANIC ACID [Suspect]
     Indication: INFECTED SKIN ULCER
     Dosage: 625 MG, TID
     Route: 065
  4. METRONIDAZOLE [Suspect]
     Indication: INFECTED SKIN ULCER
     Dosage: 400 MG, TID
     Route: 065
  5. PREDNISOLONE [Suspect]
     Indication: VASCULITIS
     Dosage: 60 MG, QD
     Route: 048
  6. WARFARIN [Suspect]
     Indication: VASCULITIS
     Dosage: UNK
     Route: 065
  7. WARFARIN [Suspect]
     Indication: DEEP VEIN THROMBOSIS
     Dosage: UNK
     Route: 065

REACTIONS (3)
  - Skin necrosis [Recovering/Resolving]
  - Staphylococcal skin infection [Unknown]
  - Bacterial infection [Unknown]
